FAERS Safety Report 5971479-9 (Version None)
Quarter: 2008Q4

REPORT INFORMATION
  Report Type: 
  Country: None (occurrence: None)
  Receive Date: 20081201
  Receipt Date: 20081119
  Transmission Date: 20090506
  Serious: Yes (Hospitalization)
  Sender: FDA-Public Use
  Company Number: SE-JNJFOC-20081007113

PATIENT
  Sex: Female

DRUGS (7)
  1. REMICADE [Suspect]
     Route: 042
  2. REMICADE [Suspect]
     Dosage: 3RD INFUSION
     Route: 042
  3. REMICADE [Suspect]
     Dosage: DATE UNKNOWN FOR 2ND INFUSION
     Route: 042
  4. REMICADE [Suspect]
     Indication: CROHN'S DISEASE
     Route: 042
  5. CORTISONE ACETATE TAB [Concomitant]
  6. TAVEGYL [Concomitant]
     Indication: PREMEDICATION
  7. SOLU-CORTEF [Concomitant]
     Indication: PREMEDICATION

REACTIONS (8)
  - ARTHRALGIA [None]
  - CHEST DISCOMFORT [None]
  - COUGH [None]
  - ERYTHEMA [None]
  - FEELING HOT [None]
  - GAIT DISTURBANCE [None]
  - HOSPITALISATION [None]
  - INFUSION RELATED REACTION [None]
